FAERS Safety Report 4791200-X (Version None)
Quarter: 2005Q4

REPORT INFORMATION
  Report Type: 
  Country: None (occurrence: None)
  Receive Date: 20051005
  Receipt Date: 20050926
  Transmission Date: 20060501
  Serious: Yes (Life-Threatening, Hospitalization)
  Sender: FDA-Public Use
  Company Number: GBR-2005-0001784

PATIENT
  Age: 82 Year
  Sex: Male

DRUGS (1)
  1. BUPRENORPHINE HCL [Suspect]
     Indication: PAIN
     Dosage: 35 MCG, Q1H, TRANSDERMAL
     Route: 062

REACTIONS (3)
  - DYSPNOEA [None]
  - SEDATION [None]
  - SOMNOLENCE [None]
